FAERS Safety Report 4652736-5 (Version None)
Quarter: 2005Q2

REPORT INFORMATION
  Report Type: 
  Country: None (occurrence: None)
  Receive Date: 20050502
  Receipt Date: 20050422
  Transmission Date: 20051028
  Serious: Yes (Other)
  Sender: FDA-Public Use
  Company Number: 2005063934

PATIENT
  Age: 21 Year
  Sex: Female

DRUGS (1)
  1. UNISOM [Suspect]
     Indication: OVERDOSE
     Dosage: 20 SLEEPGELS ONCE, ORAL
     Route: 048
     Dates: start: 20050422, end: 20050422

REACTIONS (2)
  - INCOHERENT [None]
  - OVERDOSE [None]
